FAERS Safety Report 9778886 (Version 1)
Quarter: 2013Q4

REPORT INFORMATION
  Report Type: Spontaneous
  Country: IN (occurrence: IN)
  Receive Date: 20131223
  Receipt Date: 20131223
  Transmission Date: 20140711
  Serious: Yes (Other)
  Sender: FDA-Public Use
  Company Number: IN-JHP PHARMACEUTICALS, LLC-JHP201300764

PATIENT
  Age: 60 Year
  Sex: Female

DRUGS (4)
  1. COLY-MYCIN M PARENTERAL [Suspect]
     Indication: SEPTIC SHOCK
     Dosage: 8 M IU
  2. PIPERACILLIN AND TAZOBACTAM [Suspect]
     Indication: SEPTIC SHOCK
  3. NORADRENALIN [Concomitant]
  4. SEDATION [Concomitant]

REACTIONS (1)
  - Muscular weakness [Recovering/Resolving]
